APPROVED DRUG PRODUCT: TOREMIFENE CITRATE
Active Ingredient: TOREMIFENE CITRATE
Strength: EQ 60MG BASE
Dosage Form/Route: TABLET;ORAL
Application: A212818 | Product #001 | TE Code: AB
Applicant: MSN LABORATORIES PRIVATE LTD
Approved: Aug 18, 2020 | RLD: No | RS: No | Type: RX